FAERS Safety Report 5012991-9 (Version None)
Quarter: 2006Q2

REPORT INFORMATION
  Report Type: 
  Country: None (occurrence: None)
  Receive Date: 20060530
  Receipt Date: 20060519
  Transmission Date: 20061013
  Serious: Yes (Hospitalization)
  Sender: FDA-Public Use
  Company Number: 2006AP02312

PATIENT
  Age: 69 Year
  Sex: Male

DRUGS (2)
  1. DIPRIVAN [Suspect]
     Indication: SEDATION
     Route: 042
     Dates: start: 20060501, end: 20060510
  2. FENTANEST [Concomitant]
     Route: 042
     Dates: start: 20060504, end: 20060509

REACTIONS (1)
  - DELAYED RECOVERY FROM ANAESTHESIA [None]
